FAERS Safety Report 6461971-5 (Version None)
Quarter: 2009Q4

REPORT INFORMATION
  Report Type: 
  Country: None (occurrence: None)
  Receive Date: 20091123
  Receipt Date: 20091109
  Transmission Date: 20100525
  Serious: Yes (Death, Hospitalization)
  Sender: FDA-Public Use
  Company Number: 2009AC000393

PATIENT
  Age: 70 Year
  Sex: Male

DRUGS (25)
  1. DIGOXIN [Suspect]
     Dosage: 0.25 MG; QD; PO
     Route: 048
     Dates: start: 20070222, end: 20080213
  2. LASIX [Concomitant]
  3. HYDRALAZINE HCL [Concomitant]
  4. ISOSORBIDE [Concomitant]
  5. CAPTOPRIL [Concomitant]
  6. FUROSEMIDE [Concomitant]
  7. METOLAZONE [Concomitant]
  8. POTASSIUM [Concomitant]
  9. MULTI-VITAMIN [Concomitant]
  10. NOVOLIN [Concomitant]
  11. IMDUR [Concomitant]
  12. CAPOTEN [Concomitant]
  13. ASPIRIN [Concomitant]
  14. ZAROXOLYN [Concomitant]
  15. KAY CIEL DURA-TABS [Concomitant]
  16. UNASYN [Concomitant]
  17. COLACE [Concomitant]
  18. IMDUR [Concomitant]
  19. LASIX [Concomitant]
  20. METOLAZONE [Concomitant]
  21. CAPTOPRIL [Concomitant]
  22. HYDRALAZINE HCL [Concomitant]
  23. POTASSIUM [Concomitant]
  24. ASPIRIN [Concomitant]
  25. INSULIN [Concomitant]

REACTIONS (19)
  - ASCITES [None]
  - ASTHENIA [None]
  - CARDIAC FAILURE CONGESTIVE [None]
  - CHEST DISCOMFORT [None]
  - CORONARY ARTERY DISEASE [None]
  - DEBRIDEMENT [None]
  - DISCOMFORT [None]
  - DIZZINESS [None]
  - DYSPNOEA [None]
  - ECONOMIC PROBLEM [None]
  - ISCHAEMIC CARDIOMYOPATHY [None]
  - MULTIPLE INJURIES [None]
  - OEDEMA PERIPHERAL [None]
  - ORTHOSTATIC HYPOTENSION [None]
  - PERIPHERAL ARTERIAL OCCLUSIVE DISEASE [None]
  - STAPHYLOCOCCAL INFECTION [None]
  - SURGERY [None]
  - TOE AMPUTATION [None]
  - WAIST CIRCUMFERENCE INCREASED [None]
